FAERS Safety Report 14921932 (Version 1)
Quarter: 2018Q2

REPORT INFORMATION
  Report Type: Other
  Country: DE (occurrence: DE)
  Receive Date: 20180522
  Receipt Date: 20180522
  Transmission Date: 20180711
  Serious: Yes (Hospitalization)
  Sender: FDA-Public Use
  Company Number: DE-LUPIN PHARMACEUTICALS INC.-2017-02387

PATIENT

DRUGS (2)
  1. QUETIAPIN-HORMOSAN [Suspect]
     Active Substance: QUETIAPINE FUMARATE
     Indication: SCHIZOPHRENIA
     Dosage: 700 MG, UNK
     Route: 048
     Dates: start: 201611, end: 201703
  2. AKINETON [Concomitant]
     Active Substance: BIPERIDEN HYDROCHLORIDE
     Indication: SCHIZOPHRENIA
     Dosage: 4 MG, UNK
     Route: 048
     Dates: start: 201612, end: 201703

REACTIONS (2)
  - Weight increased [Recovering/Resolving]
  - Blood prolactin increased [Recovering/Resolving]

NARRATIVE: CASE EVENT DATE: 201611
